FAERS Safety Report 7805806 (Version 2)
Quarter: 2012Q4

REPORT INFORMATION
  Report Type: 
  Country: AR (occurrence: AR)
  Receive Date: 20110209
  Receipt Date: 20120924
  Transmission Date: 20130627
  Serious: Yes (Death)
  Sender: FDA-Public Use
  Company Number: AR-BRISTOL-MYERS SQUIBB COMPANY-15539729

PATIENT

DRUGS (1)
  1. ORENCIA [Suspect]
     Route: 064

REACTIONS (2)
  - Foetal death [Fatal]
  - Trisomy 21 [Unknown]
